FAERS Safety Report 5822078-0 (Version None)
Quarter: 2008Q3

REPORT INFORMATION
  Report Type: 
  Country: None (occurrence: None)
  Receive Date: 20080722
  Receipt Date: 20080722
  Transmission Date: 20090109
  Serious: Yes (Other)
  Sender: FDA-Public Use
  Company Number: None

PATIENT
  Sex: Male
  Weight: 67.586 kg

DRUGS (2)
  1. RISPERDAL [Suspect]
     Indication: DEMENTIA
     Dosage: 1MG QHS PO
     Route: 048
     Dates: start: 20060210, end: 20080601
  2. RISPERDAL [Suspect]
     Indication: DEMENTIA ALZHEIMER'S TYPE
     Dosage: 1MG QHS PO
     Route: 048
     Dates: start: 20060210, end: 20080601

REACTIONS (1)
  - TARDIVE DYSKINESIA [None]
